FAERS Safety Report 4824921-0 (Version None)
Quarter: 2005Q4

REPORT INFORMATION
  Report Type: 
  Country: None (occurrence: None)
  Receive Date: 20051108
  Receipt Date: 20051103
  Transmission Date: 20060501
  Serious: Yes (Other)
  Sender: FDA-Public Use
  Company Number: 200513741GDS

PATIENT
  Age: 67 Year
  Sex: Male

DRUGS (1)
  1. AVELOX [Suspect]
     Indication: BRONCHITIS ACUTE
     Dosage: 400 MG, ORAL
     Route: 048
     Dates: end: 20041101

REACTIONS (2)
  - ASTHENIA [None]
  - FALL [None]
